FAERS Safety Report 14576437 (Version 2)
Quarter: 2019Q2

REPORT INFORMATION
  Report Type: Spontaneous
  Country: US (occurrence: US)
  Receive Date: 20180227
  Receipt Date: 20190425
  Transmission Date: 20190711
  Serious: No
  Sender: FDA-Public Use
  Company Number: US-PFIZER INC-2018080359

PATIENT
  Age: 66 Year
  Sex: Female
  Weight: 77 kg

DRUGS (9)
  1. PRAVASTATIN. [Concomitant]
     Active Substance: PRAVASTATIN
     Indication: BLOOD CHOLESTEROL
     Dosage: 80 MG, 1X/DAY
     Route: 048
  2. EXCEDRIN [Concomitant]
     Active Substance: ACETAMINOPHEN\ASPIRIN\CAFFEINE
     Dosage: UNK
  3. ASPIRIN /00002701/ [Concomitant]
     Active Substance: ASPIRIN
     Indication: FAMILIAL RISK FACTOR
     Dosage: 81 MG, 1X/DAY
     Route: 048
  4. ADVIL COLD AND SINUS [Suspect]
     Active Substance: IBUPROFEN\PSEUDOEPHEDRINE HYDROCHLORIDE
     Indication: NASAL CONGESTION
  5. ADVIL COLD AND SINUS [Suspect]
     Active Substance: IBUPROFEN\PSEUDOEPHEDRINE HYDROCHLORIDE
     Indication: NASOPHARYNGITIS
  6. ADVIL COLD AND SINUS [Suspect]
     Active Substance: IBUPROFEN\PSEUDOEPHEDRINE HYDROCHLORIDE
     Indication: SINUS DISORDER
  7. ADVIL COLD AND SINUS [Suspect]
     Active Substance: IBUPROFEN\PSEUDOEPHEDRINE HYDROCHLORIDE
     Indication: HEADACHE
     Dosage: 200 MG, UNK
     Route: 048
     Dates: start: 20180221, end: 20180223
  8. ADVIL COLD AND SINUS [Suspect]
     Active Substance: IBUPROFEN\PSEUDOEPHEDRINE HYDROCHLORIDE
     Indication: PARANASAL SINUS DISCOMFORT
     Dosage: 2 LIQUIGELS ON THE FIRST DAY AND THEN 1 A COUPLE DAYS LATER
     Route: 048
     Dates: start: 20180214, end: 20180216
  9. ZICAM /00070002/ [Concomitant]
     Dosage: UNK

REACTIONS (1)
  - Drug ineffective [Unknown]

NARRATIVE: CASE EVENT DATE: 20180214
